FAERS Safety Report 10248025 (Version 2)
Quarter: 2016Q3

REPORT INFORMATION
  Report Type: Report from Study
  Country: VE (occurrence: VE)
  Receive Date: 20140619
  Receipt Date: 20160731
  Transmission Date: 20161109
  Serious: Yes (Hospitalization)
  Sender: FDA-Public Use
  Company Number: VE-ABBVIE-14P-178-1249300-00

PATIENT
  Age: 43 Year
  Sex: Female
  Weight: 68 kg

DRUGS (1)
  1. HUMIRA [Suspect]
     Active Substance: ADALIMUMAB
     Indication: PSORIASIS
     Route: 058
     Dates: start: 20131001, end: 20140515

REACTIONS (3)
  - Abscess neck [Recovered/Resolved]
  - Lymphadenopathy [Recovered/Resolved]
  - Parotitis [Recovered/Resolved]

NARRATIVE: CASE EVENT DATE: 20140515
